FAERS Safety Report 7477996-7 (Version None)
Quarter: 2011Q2

REPORT INFORMATION
  Report Type: 
  Country: None (occurrence: None)
  Receive Date: 20110513
  Receipt Date: 20110503
  Transmission Date: 20111010
  Serious: Yes (Hospitalization)
  Sender: FDA-Public Use
  Company Number: RO-BAYER-2011-033796

PATIENT
  Age: 70 Year
  Sex: Male

DRUGS (5)
  1. AVELOX [Suspect]
     Indication: SINUSITIS
     Dosage: 400 MG, QD
     Route: 048
     Dates: start: 20110407, end: 20110411
  2. METOPROLOL SUCCINATE [Concomitant]
     Dosage: UNK UNK, BID
  3. TELMISARTAN [Concomitant]
     Dosage: 1 TABLET
  4. PHYSIOPLUS [Concomitant]
  5. OMNIC [Concomitant]
     Dosage: UNK UNK, QD

REACTIONS (2)
  - STRABISMUS [None]
  - DIPLOPIA [None]
